FAERS Safety Report 9759517 (Version 1)
Quarter: 2013Q4

REPORT INFORMATION
  Report Type: Spontaneous
  Country: US (occurrence: None)
  Receive Date: 20131212
  Receipt Date: 20131212
  Transmission Date: 20140711
  Serious: Yes (Death)
  Sender: FDA-Public Use
  Company Number: 1312-1557

PATIENT
  Sex: Male

DRUGS (1)
  1. EYELEA [Suspect]
     Indication: AGE-RELATED MACULAR DEGENERATION
     Dosage: INTRAVITREAL
     Route: 050
     Dates: start: 20131021

REACTIONS (1)
  - Death [None]
